FAERS Safety Report 6893483-9 (Version None)
Quarter: 2010Q3

REPORT INFORMATION
  Report Type: 
  Country: None (occurrence: None)
  Receive Date: 20100731
  Receipt Date: 20090923
  Transmission Date: 20110219
  Serious: Yes (Other)
  Sender: FDA-Public Use
  Company Number: US-PFIZER INC-2009274272

PATIENT
  Sex: Female

DRUGS (1)
  1. LIPITOR [Suspect]
     Indication: BLOOD CHOLESTEROL INCREASED
     Dosage: UNK
     Route: 048

REACTIONS (5)
  - DIABETES MELLITUS [None]
  - FIBROMYALGIA [None]
  - GASTRIC DISORDER [None]
  - TENDON DISORDER [None]
  - TRIGGER FINGER [None]
